FAERS Safety Report 25015983 (Version 1)
Quarter: 2025Q1

REPORT INFORMATION
  Report Type: Other
  Country: US (occurrence: US)
  Receive Date: 20250227
  Receipt Date: 20250227
  Transmission Date: 20250408
  Serious: Yes (Hospitalization)
  Sender: ESJAY PHARMA
  Company Number: US-ESJAY PHARMA-000332

PATIENT
  Age: 7 Decade
  Sex: Female

DRUGS (4)
  1. SOTALOL [Suspect]
     Active Substance: SOTALOL
     Indication: Atrial fibrillation
  2. WARFARIN [Concomitant]
     Active Substance: WARFARIN
     Indication: Atrial fibrillation
  3. SOTALOL [Suspect]
     Active Substance: SOTALOL
     Indication: Hypertension
  4. WARFARIN [Concomitant]
     Active Substance: WARFARIN
     Indication: Hypertension

REACTIONS (2)
  - Accidental exposure to product [Unknown]
  - Toxicity to various agents [Unknown]
